FAERS Safety Report 11939154 (Version 1)
Quarter: 2016Q1

REPORT INFORMATION
  Report Type: Spontaneous
  Country: SE (occurrence: SE)
  Receive Date: 20160122
  Receipt Date: 20160122
  Transmission Date: 20160526
  Serious: Yes (Life-Threatening, Hospitalization, Other)
  Sender: FDA-Public Use
  Company Number: SE-TEVA-626657ISR

PATIENT
  Age: 70 Year
  Sex: Male

DRUGS (7)
  1. BICALUTAMIDE. [Suspect]
     Active Substance: BICALUTAMIDE
  2. YENTREVE [Suspect]
     Active Substance: DULOXETINE HYDROCHLORIDE
  3. METFORMIN [Suspect]
     Active Substance: METFORMIN HYDROCHLORIDE
  4. TROMBYL [Suspect]
     Active Substance: ASPIRIN
  5. LOSARTAN. [Suspect]
     Active Substance: LOSARTAN
  6. SIMVASTATIN. [Suspect]
     Active Substance: SIMVASTATIN
  7. BEHEPAN [Suspect]
     Active Substance: HYDROXOCOBALAMIN

REACTIONS (3)
  - Toxicity to various agents [Recovered/Resolved]
  - Lactic acidosis [Recovered/Resolved]
  - Acute kidney injury [Recovered/Resolved]
